FAERS Safety Report 4319699-3 (Version None)
Quarter: 2004Q1

REPORT INFORMATION
  Report Type: 
  Country: None (occurrence: None)
  Receive Date: 20040319
  Receipt Date: 20040315
  Transmission Date: 20041129
  Serious: Yes (Other)
  Sender: FDA-Public Use
  Company Number: WAES 0403GBR00166

PATIENT
  Age: 52 Year
  Sex: Female

DRUGS (3)
  1. FLURAZEPAM HYDROCHLORIDE [Concomitant]
  2. LANSOPRAZOLE [Concomitant]
  3. VIOXX [Suspect]
     Indication: RHEUMATOID ARTHRITIS
     Route: 048
     Dates: start: 20040224, end: 20040224

REACTIONS (4)
  - CHEST PAIN [None]
  - NAUSEA [None]
  - RASH [None]
  - TREMOR [None]
